FAERS Safety Report 10716957 (Version 1)
Quarter: 2015Q1

REPORT INFORMATION
  Report Type: Spontaneous
  Country: US (occurrence: US)
  Receive Date: 20150116
  Receipt Date: 20150116
  Transmission Date: 20150721
  Serious: Yes (Other)
  Sender: FDA-Public Use
  Company Number: US-VIVUS-2013V1000165

PATIENT
  Age: 55 Year
  Sex: Female

DRUGS (10)
  1. NORVASC [Concomitant]
     Active Substance: AMLODIPINE BESYLATE
  2. CO ENZYME Q10 [Concomitant]
  3. GLUMETZA [Concomitant]
     Active Substance: METFORMIN HYDROCHLORIDE
     Dosage: DAILY DOSE: 3 TABLET,
  4. QSYMIA [Suspect]
     Active Substance: PHENTERMINE HYDROCHLORIDE\TOPIRAMATE
     Indication: OBESITY
     Dosage: DAILY DOSE: 1 CAPSULE,
     Route: 048
     Dates: start: 20130217, end: 20130303
  5. QSYMIA [Suspect]
     Active Substance: PHENTERMINE HYDROCHLORIDE\TOPIRAMATE
     Indication: OBESITY
     Dosage: DAILY DOSE: 1 CAPSULE,
     Route: 048
     Dates: start: 20130304, end: 20130315
  6. RAMIPRIL. [Concomitant]
     Active Substance: RAMIPRIL
  7. ZETIA [Concomitant]
     Active Substance: EZETIMIBE
  8. LIVALO [Concomitant]
     Active Substance: PITAVASTATIN CALCIUM
  9. VITAMIN B12 [Concomitant]
     Active Substance: CYANOCOBALAMIN
  10. VITAMIN D3 [Concomitant]
     Active Substance: CHOLECALCIFEROL

REACTIONS (4)
  - Pain [Not Recovered/Not Resolved]
  - Depression [Not Recovered/Not Resolved]
  - Insomnia [Not Recovered/Not Resolved]
  - Suicidal ideation [Recovered/Resolved]

NARRATIVE: CASE EVENT DATE: 20130217
